FAERS Safety Report 10399772 (Version 1)
Quarter: 2014Q3

REPORT INFORMATION
  Report Type: Spontaneous
  Country: FR (occurrence: FR)
  Receive Date: 20140821
  Receipt Date: 20140821
  Transmission Date: 20150326
  Serious: Yes (Hospitalization)
  Sender: FDA-Public Use
  Company Number: FR-DSJP-DSE-2014-118639

PATIENT

DRUGS (10)
  1. VEMURAFENIB [Suspect]
     Active Substance: VEMURAFENIB
     Indication: MALIGNANT MELANOMA
     Dosage: 960 MG, BID
     Dates: start: 201204, end: 201206
  2. ACETYLSALICYLATE LYSINE [Concomitant]
     Active Substance: ASPIRIN DL-LYSINE
     Indication: PRODUCT USED FOR UNKNOWN INDICATION
  3. IODINE [Suspect]
     Active Substance: IODINE
     Indication: PRODUCT USED FOR UNKNOWN INDICATION
     Dosage: UNK
     Dates: start: 201204, end: 201204
  4. CARMUSTINE [Suspect]
     Active Substance: CARMUSTINE
     Indication: METASTASES TO LYMPH NODES
  5. OLMESARTAN MEDOXOMIL; HYDROCHLOROTHIAZIDE [Suspect]
     Active Substance: HYDROCHLOROTHIAZIDE\OLMESARTAN MEDOXOMIL
     Indication: HYPERTENSION
     Dosage: 1 UNK, UNK
     Dates: start: 201204, end: 201205
  6. DACARBAZINE. [Suspect]
     Active Substance: DACARBAZINE
     Indication: METASTASES TO LYMPH NODES
  7. OLMESARTAN MEDOXOMIL; HYDROCHLOROTHIAZIDE [Suspect]
     Active Substance: HYDROCHLOROTHIAZIDE\OLMESARTAN MEDOXOMIL
     Dosage: UNK
     Dates: start: 201205, end: 201206
  8. VEMURAFENIB [Suspect]
     Active Substance: VEMURAFENIB
     Dosage: 720 UNK, UNK
     Dates: start: 201206
  9. NICARDIPINE [Concomitant]
     Active Substance: NICARDIPINE
     Indication: PRODUCT USED FOR UNKNOWN INDICATION
  10. CISPLATIN. [Suspect]
     Active Substance: CISPLATIN
     Indication: METASTASES TO LYMPH NODES

REACTIONS (7)
  - Renal impairment [Recovering/Resolving]
  - Iatrogenic injury [None]
  - Acne [Unknown]
  - Haematuria [Recovered/Resolved]
  - Hepatocellular injury [Unknown]
  - Proteinuria [Not Recovered/Not Resolved]
  - Cholestasis [Unknown]

NARRATIVE: CASE EVENT DATE: 2010
